FAERS Safety Report 15492011 (Version 1)
Quarter: 2018Q4

REPORT INFORMATION
  Report Type: Spontaneous
  Country: US (occurrence: US)
  Receive Date: 20181011
  Receipt Date: 20181011
  Transmission Date: 20190205
  Serious: Yes (Hospitalization)
  Sender: FDA-Public Use
  Company Number: None

PATIENT
  Age: 54 Year
  Sex: Male

DRUGS (14)
  1. HYDROCHLOROT [Concomitant]
     Active Substance: HYDROCHLOROTHIAZIDE
  2. METOPROLOL TARTRATE. [Concomitant]
     Active Substance: METOPROLOL TARTRATE
  3. HYDROCO/APAP [Concomitant]
     Active Substance: ACETAMINOPHEN\HYDROCODONE
  4. CANDESARTAN. [Concomitant]
     Active Substance: CANDESARTAN
  5. CLOPIDOGREL [Concomitant]
     Active Substance: CLOPIDOGREL BISULFATE
  6. FUROSEMIDE. [Concomitant]
     Active Substance: FUROSEMIDE
  7. FAMOTIDINE. [Concomitant]
     Active Substance: FAMOTIDINE
  8. REPATHA [Suspect]
     Active Substance: EVOLOCUMAB
     Indication: PRODUCT USED FOR UNKNOWN INDICATION
     Dosage: ?          OTHER FREQUENCY:Q 2 WEEKS;?
     Route: 058
     Dates: start: 20180923
  9. ATORVASTATIN [Concomitant]
     Active Substance: ATORVASTATIN
  10. AMIODARONE [Concomitant]
     Active Substance: AMIODARONE
  11. POT CL MICRO [Concomitant]
  12. TEMAZEPAM. [Concomitant]
     Active Substance: TEMAZEPAM
  13. ATENOLOL. [Concomitant]
     Active Substance: ATENOLOL
  14. ISORB MONO [Concomitant]

REACTIONS (2)
  - Therapy cessation [None]
  - Cardiac operation [None]

NARRATIVE: CASE EVENT DATE: 20181002
